FAERS Safety Report 6693066-X (Version None)
Quarter: 2010Q2

REPORT INFORMATION
  Report Type: 
  Country: None (occurrence: None)
  Receive Date: 20100420
  Receipt Date: 20100407
  Transmission Date: 20101027
  Serious: Yes (Death, Hospitalization)
  Sender: FDA-Public Use
  Company Number: 2009AC000306

PATIENT
  Age: 74 Year
  Sex: Female

DRUGS (10)
  1. DIGOXIN [Suspect]
     Dosage: .250 MG; QD; PO
     Route: 048
     Dates: start: 20071019, end: 20071028
  2. LASIX [Concomitant]
  3. TOPROL-XL [Concomitant]
  4. KAY CIEL DURA-TABS [Concomitant]
  5. VANTIN [Concomitant]
  6. AGGRENOX [Concomitant]
  7. CEFPODOXIME PROXETIL [Concomitant]
  8. MULTI-VITAMIN [Concomitant]
  9. GARLIC [Concomitant]
  10. GINSENG [Concomitant]

REACTIONS (19)
  - AORTIC VALVE INCOMPETENCE [None]
  - ARRHYTHMIA [None]
  - ASTHENIA [None]
  - CARDIAC ARREST [None]
  - CAROTID ARTERY STENOSIS [None]
  - CEREBRAL HAEMATOMA [None]
  - CEREBRAL HAEMORRHAGE [None]
  - CEREBRAL INFARCTION [None]
  - COUGH [None]
  - CYANOSIS [None]
  - ECONOMIC PROBLEM [None]
  - GRAND MAL CONVULSION [None]
  - MITRAL VALVE INCOMPETENCE [None]
  - MULTIPLE INJURIES [None]
  - PLEURAL EFFUSION [None]
  - RESPIRATORY ARREST [None]
  - SNORING [None]
  - TRICUSPID VALVE INCOMPETENCE [None]
  - UNRESPONSIVE TO STIMULI [None]
